FAERS Safety Report 23714728 (Version 1)
Quarter: 2024Q2

REPORT INFORMATION
  Report Type: Report from Study
  Country: CA (occurrence: CA)
  Receive Date: 20240406
  Receipt Date: 20240406
  Transmission Date: 20240716
  Serious: Yes (Other)
  Sender: FDA-Public Use
  Company Number: CA-CELLTRION INC.-2024CA008153

PATIENT

DRUGS (2)
  1. INFLIXIMAB [Suspect]
     Active Substance: INFLIXIMAB
     Indication: Rheumatoid arthritis
     Dosage: REMSIMA 120 MG/ML SC QWEEKLY FOR 8 WEEKS STARTING 29MAR2024 THEN Q2WEEKS
     Route: 058
     Dates: start: 20240126
  2. INFLIXIMAB [Suspect]
     Active Substance: INFLIXIMAB
     Dosage: 120 MG/ML, Q2WEEKS
     Route: 058
     Dates: start: 20240329

REACTIONS (2)
  - Rheumatoid arthritis [Unknown]
  - Intentional product use issue [Unknown]
